FAERS Safety Report 8893755 (Version 5)
Quarter: 2015Q2

REPORT INFORMATION
  Report Type: Spontaneous
  Country: US (occurrence: US)
  Receive Date: 20121107
  Receipt Date: 20150513
  Transmission Date: 20150821
  Serious: Yes (Disabling, Other)
  Sender: FDA-Public Use
  Company Number: US-AMGEN-USASP2011061832

PATIENT
  Age: 47 Year
  Sex: Male

DRUGS (2)
  1. ENBREL [Suspect]
     Active Substance: ETANERCEPT
     Indication: PSORIASIS
  2. ENBREL [Suspect]
     Active Substance: ETANERCEPT
     Indication: PSORIATIC ARTHROPATHY
     Dosage: 50 MG EVERY FIVE DAYS
     Route: 065
     Dates: start: 20051007, end: 2012

REACTIONS (21)
  - Blindness [Not Recovered/Not Resolved]
  - Disorientation [Not Recovered/Not Resolved]
  - Personality change [Unknown]
  - Back pain [Recovered/Resolved]
  - Paraesthesia [Unknown]
  - Intelligence test abnormal [Unknown]
  - Hearing impaired [Unknown]
  - Visual impairment [Not Recovered/Not Resolved]
  - Arthralgia [Not Recovered/Not Resolved]
  - Neck pain [Recovered/Resolved]
  - Psoriasis [Not Recovered/Not Resolved]
  - Amnesia [Unknown]
  - Psoriatic arthropathy [Not Recovered/Not Resolved]
  - Acute disseminated encephalomyelitis [Unknown]
  - Mania [Unknown]
  - Dyslexia [Unknown]
  - Memory impairment [Unknown]
  - Demyelination [Unknown]
  - Impaired driving ability [Unknown]
  - Dysgeusia [Unknown]
  - Confusional state [Unknown]

NARRATIVE: CASE EVENT DATE: 2009
